FAERS Safety Report 25304107 (Version 1)
Quarter: 2025Q2

REPORT INFORMATION
  Report Type: Spontaneous
  Country: US (occurrence: US)
  Receive Date: 20250513
  Receipt Date: 20250513
  Transmission Date: 20250716
  Serious: No
  Sender: JOHNSON AND JOHNSON
  Company Number: US-VIIV HEALTHCARE-US2025053946

PATIENT
  Age: 47 Year
  Sex: Female
  Weight: 90.72 kg

DRUGS (2)
  1. RILPIVIRINE [Suspect]
     Active Substance: RILPIVIRINE
     Indication: HIV infection
     Route: 065
     Dates: start: 2023, end: 2024
  2. CABOTEGRAVIR [Suspect]
     Active Substance: CABOTEGRAVIR
     Indication: HIV infection
     Dosage: UNK, Q2M
     Dates: start: 2023, end: 2024

REACTIONS (5)
  - Viral load increased [Unknown]
  - Attention deficit hyperactivity disorder [Not Recovered/Not Resolved]
  - Crying [Unknown]
  - Injection site pain [Unknown]
  - Mental disorder [Unknown]

NARRATIVE: CASE EVENT DATE: 20250401
